FAERS Safety Report 4800621-8 (Version None)
Quarter: 2005Q4

REPORT INFORMATION
  Report Type: 
  Country: None (occurrence: None)
  Receive Date: 20051013
  Receipt Date: 20051013
  Transmission Date: 20060501
  Serious: Yes (Other)
  Sender: FDA-Public Use
  Company Number: None

PATIENT
  Age: 48 Year
  Sex: Male
  Weight: 67.586 kg

DRUGS (8)
  1. SEROQUEL [Suspect]
     Indication: BIPOLAR DISORDER
     Dosage: 600 MG DAILY PO
     Route: 048
     Dates: start: 20041119, end: 20050306
  2. COLACE [Concomitant]
  3. FIBERCON [Concomitant]
  4. LACTULOSE [Concomitant]
  5. SYNTHROID [Concomitant]
  6. LITHIUM CARBONATE [Concomitant]
  7. ATIVAN [Concomitant]
  8. SEROQUEL [Concomitant]

REACTIONS (2)
  - NEUTROPENIA [None]
  - WHITE BLOOD CELL COUNT DECREASED [None]
